FAERS Safety Report 13298098 (Version 1)
Quarter: 2017Q1

REPORT INFORMATION
  Report Type: Spontaneous
  Country: US (occurrence: US)
  Receive Date: 20170306
  Receipt Date: 20170306
  Transmission Date: 20170428
  Serious: Yes (Hospitalization)
  Sender: FDA-Public Use
  Company Number: US-PFIZER INC-2017090319

PATIENT
  Age: 47 Year
  Sex: Female

DRUGS (1)
  1. IBUPROFEN. [Suspect]
     Active Substance: IBUPROFEN
     Dosage: 4-5 TIMES/DAY

REACTIONS (4)
  - Unmasking of previously unidentified disease [Unknown]
  - Ecchymosis [Unknown]
  - Vitamin K deficiency [Unknown]
  - Haematuria [Unknown]
